FAERS Safety Report 22713161 (Version 13)
Quarter: 2025Q3

REPORT INFORMATION
  Report Type: Report from Study
  Country: US (occurrence: US)
  Receive Date: 20230717
  Receipt Date: 20250901
  Transmission Date: 20251020
  Serious: Yes (Other)
  Sender: TAKEDA
  Company Number: US-TAKEDA-2020TUS045610

PATIENT
  Age: 56 Year
  Sex: Female

DRUGS (4)
  1. HUMAN IMMUNOGLOBULIN G [Suspect]
     Active Substance: HUMAN IMMUNOGLOBULIN G
     Indication: Primary immunodeficiency syndrome
     Dosage: 40 GRAM, Q4WEEKS
  2. HUMAN IMMUNOGLOBULIN G [Suspect]
     Active Substance: HUMAN IMMUNOGLOBULIN G
     Dosage: 40 GRAM, MONTHLY
  3. HYQVIA [Suspect]
     Active Substance: HUMAN IMMUNOGLOBULIN G\HYALURONIDASE (HUMAN RECOMBINANT)
     Indication: Primary immunodeficiency syndrome
  4. HYQVIA [Suspect]
     Active Substance: HUMAN IMMUNOGLOBULIN G\HYALURONIDASE (HUMAN RECOMBINANT)
     Indication: Immunodeficiency common variable

REACTIONS (29)
  - Cataract [Unknown]
  - Sinus headache [Unknown]
  - Nasal discharge discolouration [Unknown]
  - Multiple allergies [Unknown]
  - Stress [Unknown]
  - Weight increased [Unknown]
  - Upper limb fracture [Unknown]
  - Infusion site discharge [Recovered/Resolved]
  - Incorrect drug administration rate [Unknown]
  - Urinary tract infection [Unknown]
  - Infusion site erythema [Unknown]
  - Pain [Unknown]
  - Arthralgia [Unknown]
  - Fatigue [Unknown]
  - Headache [Unknown]
  - Arthritis [Not Recovered/Not Resolved]
  - Hiatus hernia [Unknown]
  - Bronchitis [Unknown]
  - COVID-19 [Unknown]
  - Alopecia [Unknown]
  - Poor venous access [Unknown]
  - Dermatitis contact [Unknown]
  - Blister [Unknown]
  - Infusion related reaction [Unknown]
  - Increased tendency to bruise [Unknown]
  - Mass [Unknown]
  - Influenza [Unknown]
  - Nasal congestion [Unknown]
  - Cough [Not Recovered/Not Resolved]

NARRATIVE: CASE EVENT DATE: 20210322
